FAERS Safety Report 9465967 (Version 2)
Quarter: 2013Q4

REPORT INFORMATION
  Report Type: Spontaneous
  Country: CA (occurrence: CA)
  Receive Date: 20130820
  Receipt Date: 20131112
  Transmission Date: 20140711
  Serious: Yes (Death, Hospitalization)
  Sender: FDA-Public Use
  Company Number: CA-SANOFI-AVENTIS-2013SA081531

PATIENT
  Age: 64 Year
  Sex: Male

DRUGS (7)
  1. LASIX [Suspect]
     Indication: PRODUCT USED FOR UNKNOWN INDICATION
     Route: 065
  2. METFORMIN [Suspect]
     Indication: PRODUCT USED FOR UNKNOWN INDICATION
     Route: 065
  3. METOLAZONE [Suspect]
     Indication: PRODUCT USED FOR UNKNOWN INDICATION
     Route: 065
  4. NOVOLIN GE NPH [Suspect]
     Indication: PRODUCT USED FOR UNKNOWN INDICATION
     Dosage: FORM: SUSPENSION FOR INJECTION?STRENGTH 10 ML VIAL
     Route: 058
  5. NOVORAPID [Suspect]
     Indication: PRODUCT USED FOR UNKNOWN INDICATION
     Dosage: STRENGTH-100U/ML
     Route: 065
  6. ASPIRIN [Concomitant]
  7. TYLENOL [Concomitant]

REACTIONS (6)
  - Cardiac failure congestive [Fatal]
  - Cardiogenic shock [Fatal]
  - Condition aggravated [Fatal]
  - Hepatic function abnormal [Fatal]
  - Pneumonia [Fatal]
  - Renal failure acute [Fatal]
